FAERS Safety Report 5315606-5 (Version None)
Quarter: 2007Q2

REPORT INFORMATION
  Report Type: 
  Country: None (occurrence: None)
  Receive Date: 20070427
  Receipt Date: 20070413
  Transmission Date: 20071010
  Serious: Yes (Other)
  Sender: FDA-Public Use
  Company Number: US-1162679

PATIENT
  Age: 60 Year
  Sex: Female
  Weight: 65.7716 kg

DRUGS (1)
  1. SYSTANE FREE LIQUID GEL EYE DROPS [Suspect]
     Indication: KERATOCONJUNCTIVITIS SICCA
     Dosage: (AS NEEDED OPHTHALMIC)
     Route: 047
     Dates: start: 20070411, end: 20070412

REACTIONS (4)
  - CHEMICAL BURNS OF EYE [None]
  - CORNEAL EROSION [None]
  - EYE IRRITATION [None]
  - PHOTOPHOBIA [None]
